FAERS Safety Report 9801041 (Version 2)
Quarter: 2014Q1

REPORT INFORMATION
  Report Type: Report from Study
  Country: BR (occurrence: BR)
  Receive Date: 20140107
  Receipt Date: 20140107
  Transmission Date: 20141002
  Serious: Yes (Hospitalization)
  Sender: FDA-Public Use
  Company Number: BR-SA-2013SA131632

PATIENT
  Age: 30 Year
  Sex: Female
  Weight: 76.7 kg

DRUGS (4)
  1. THYMOGLOBULINE [Suspect]
     Indication: RENAL TRANSPLANT
     Dosage: ONCE EVERY TWO DAYS
     Route: 042
     Dates: start: 20131129
  2. TACROLIMUS [Suspect]
     Indication: RENAL TRANSPLANT
     Route: 048
     Dates: start: 20131212
  3. EVEROLIMUS [Suspect]
     Indication: RENAL TRANSPLANT
     Route: 048
     Dates: start: 20131218
  4. EVEROLIMUS [Suspect]
     Indication: RENAL TRANSPLANT
     Route: 048
     Dates: start: 20131212, end: 20131215

REACTIONS (2)
  - Lymphocele [Recovered/Resolved]
  - Leukopenia [Recovered/Resolved]
